FAERS Safety Report 8143828-7 (Version None)
Quarter: 2012Q1

REPORT INFORMATION
  Report Type: 
  Country: None (occurrence: None)
  Receive Date: 20120217
  Receipt Date: 20120209
  Transmission Date: 20120608
  Serious: Yes (Death, Hospitalization)
  Sender: FDA-Public Use
  Company Number: IT-BAYER-2012-015995

PATIENT
  Age: 55 Year
  Sex: Female

DRUGS (1)
  1. NAPROXEN SODIUM [Suspect]
     Dosage: 250 MG, QD
     Route: 048
     Dates: start: 20100114, end: 20100114

REACTIONS (2)
  - OEDEMA MOUTH [None]
  - TONGUE OEDEMA [None]
